FAERS Safety Report 18394596 (Version 3)
Quarter: 2021Q2

REPORT INFORMATION
  Report Type: Report from Study
  Country: US (occurrence: US)
  Receive Date: 20201016
  Receipt Date: 20210522
  Transmission Date: 20210717
  Serious: Yes (Other)
  Sender: FDA-Public Use
  Company Number: US-TAKEDA-2020TUS043128

PATIENT
  Sex: Female
  Weight: 100 kg

DRUGS (9)
  1. VITAMIN D [COLECALCIFEROL] [Concomitant]
     Active Substance: CHOLECALCIFEROL
     Indication: SUPPLEMENTATION THERAPY
     Dosage: UNK
     Route: 065
  2. VOLTAREN [DICLOFENAC] [Concomitant]
     Active Substance: DICLOFENAC SODIUM
     Indication: ARTHRALGIA
     Dosage: UNK
     Route: 065
  3. DEXLANSOPRAZOLE [Suspect]
     Active Substance: DEXLANSOPRAZOLE
     Indication: GASTROOESOPHAGEAL REFLUX DISEASE
     Dosage: 60 MILLIGRAM
     Route: 048
     Dates: start: 2019
  4. DEXLANSOPRAZOLE [Suspect]
     Active Substance: DEXLANSOPRAZOLE
     Indication: IMPAIRED GASTRIC EMPTYING
  5. INSULIN [Concomitant]
     Active Substance: INSULIN NOS
     Indication: DIABETES MELLITUS
     Dosage: UNK
     Route: 065
  6. LAMOTRIGINE. [Concomitant]
     Active Substance: LAMOTRIGINE
     Indication: DEPRESSION
     Dosage: 100 MILLIGRAM
     Route: 065
  7. LIPITOR [Concomitant]
     Active Substance: ATORVASTATIN CALCIUM
     Indication: PROPHYLAXIS
     Dosage: 10 MILLIGRAM
     Route: 065
  8. VICTOZA [Concomitant]
     Active Substance: LIRAGLUTIDE
     Indication: DIABETES MELLITUS
     Dosage: UNK
     Route: 065
  9. LISINOPRIL. [Concomitant]
     Active Substance: LISINOPRIL
     Indication: PROPHYLAXIS
     Dosage: UNK
     Route: 065

REACTIONS (15)
  - COVID-19 [Recovered/Resolved]
  - Paraesthesia oral [Unknown]
  - Chest pain [Unknown]
  - Vomiting [Unknown]
  - Nausea [Unknown]
  - Extra dose administered [Unknown]
  - Feeding disorder [Unknown]
  - Joint injury [Unknown]
  - Fall [Unknown]
  - Limb injury [Unknown]
  - Therapy interrupted [Unknown]
  - Illness [Unknown]
  - Shoulder operation [Unknown]
  - Weight decreased [Unknown]
  - Malaise [Unknown]

NARRATIVE: CASE EVENT DATE: 2019
